FAERS Safety Report 5315102-5 (Version None)
Quarter: 2007Q2

REPORT INFORMATION
  Report Type: 
  Country: None (occurrence: None)
  Receive Date: 20070502
  Receipt Date: 20070426
  Transmission Date: 20071010
  Serious: Yes (Hospitalization)
  Sender: FDA-Public Use
  Company Number: US-BOEHRINGER INGELHEIM PHARMACEUTICALS, INC.-2007-BP-01784PF

PATIENT
  Age: 81 Year
  Sex: Female
  Weight: 79 kg

DRUGS (11)
  1. SPIRIVA [Suspect]
     Indication: DYSPNOEA
     Dates: start: 20070108
  2. SPIRIVA [Suspect]
     Indication: FATIGUE
  3. MYCENIA [Concomitant]
  4. MESTINON [Concomitant]
     Route: 048
  5. MESTINON [Concomitant]
     Route: 048
  6. METFORMIN HCL [Concomitant]
     Route: 048
  7. SEROQUEL [Concomitant]
     Route: 048
  8. PREDNISONE TAB [Concomitant]
     Route: 048
  9. GLYBURIDE [Concomitant]
     Route: 048
  10. LISINOPRIL [Concomitant]
     Route: 048
  11. METOPROLOL TARTRATE [Concomitant]
     Route: 048

REACTIONS (19)
  - AGITATION [None]
  - ANTIACETYLCHOLINE RECEPTOR ANTIBODY POSITIVE [None]
  - ATRIAL FIBRILLATION [None]
  - CONFUSIONAL STATE [None]
  - CYANOSIS [None]
  - DEMENTIA [None]
  - DYSPHAGIA [None]
  - DYSPNOEA [None]
  - HYPERCAPNIA [None]
  - MEDIASTINAL MASS [None]
  - MYASTHENIA GRAVIS [None]
  - PARANOIA [None]
  - PNEUMONIA [None]
  - RESPIRATORY ACIDOSIS [None]
  - RESPIRATORY FAILURE [None]
  - SYNCOPE [None]
  - TROPONIN INCREASED [None]
  - UNRESPONSIVE TO STIMULI [None]
  - VENTRICULAR HYPOKINESIA [None]
